FAERS Safety Report 4436103-5 (Version None)
Quarter: 2004Q3

REPORT INFORMATION
  Report Type: 
  Country: None (occurrence: None)
  Receive Date: 20040726
  Receipt Date: 20040330
  Transmission Date: 20050211
  Serious: No
  Sender: FDA-Public Use
  Company Number: USA030435690

PATIENT
  Age: 78 Year
  Sex: Female
  Weight: 83 kg

DRUGS (8)
  1. FORTEO [Suspect]
     Indication: OSTEOPOROSIS
     Dosage: 20 UG/1 DAY
     Dates: start: 20030401
  2. HYDROCODONE W/APAP [Concomitant]
  3. NEXIUM [Concomitant]
  4. PREDNISONE [Concomitant]
  5. CALTRATE (CALCIUM CARBONATE) [Concomitant]
  6. MULTIVITAMIN [Concomitant]
  7. FOLIC ACID [Concomitant]
  8. SENOKOT [Concomitant]

REACTIONS (11)
  - ABDOMINAL PAIN [None]
  - ACCIDENTAL NEEDLE STICK [None]
  - ANIMAL BITE [None]
  - CONSTIPATION [None]
  - INJECTION SITE BURNING [None]
  - INJECTION SITE HAEMORRHAGE [None]
  - INJECTION SITE NODULE [None]
  - INJECTION SITE PAIN [None]
  - JOINT RANGE OF MOTION DECREASED [None]
  - PAIN IN EXTREMITY [None]
  - RASH [None]
